FAERS Safety Report 18701167 (Version 1)
Quarter: 2021Q1

REPORT INFORMATION
  Report Type: Spontaneous
  Country: US (occurrence: US)
  Receive Date: 20210105
  Receipt Date: 20210105
  Transmission Date: 20210419
  Serious: Yes (Hospitalization, Other)
  Sender: FDA-Public Use
  Company Number: US-AMGEN-USASP2020212456

PATIENT
  Age: 90 Year
  Sex: Female

DRUGS (1)
  1. PROLIA [Suspect]
     Active Substance: DENOSUMAB
     Indication: OSTEOPOROSIS POSTMENOPAUSAL
     Dosage: UNK
     Route: 065
     Dates: start: 202002

REACTIONS (7)
  - Arthralgia [Unknown]
  - Product use issue [Unknown]
  - Spinal compression fracture [Unknown]
  - Injection site reaction [Unknown]
  - Nocturia [Unknown]
  - Dry mouth [Unknown]
  - Dry skin [Unknown]

NARRATIVE: CASE EVENT DATE: 2020
